FAERS Safety Report 18117359 (Version 1)
Quarter: 2020Q3

REPORT INFORMATION
  Report Type: Report from Study
  Country: None (occurrence: CO)
  Receive Date: 20200805
  Receipt Date: 20200805
  Transmission Date: 20201103
  Serious: Yes (Other)
  Sender: FDA-Public Use
  Company Number: CO-ABBVIE-20K-036-3512296-00

PATIENT
  Sex: Female
  Weight: 75 kg

DRUGS (4)
  1. HUMIRA [Suspect]
     Active Substance: ADALIMUMAB
     Indication: RHEUMATOID ARTHRITIS
     Route: 058
  2. ATORVASTATIN [Concomitant]
     Active Substance: ATORVASTATIN
     Indication: BLOOD CHOLESTEROL INCREASED
     Route: 048
  3. ACETAMINOPHEN. [Concomitant]
     Active Substance: ACETAMINOPHEN
     Indication: RHEUMATOID ARTHRITIS
     Route: 048
     Dates: start: 2015
  4. HUMIRA [Suspect]
     Active Substance: ADALIMUMAB
     Indication: RHEUMATOID ARTHRITIS
     Route: 058
     Dates: start: 20150722

REACTIONS (7)
  - Amnesia [Recovering/Resolving]
  - Pain in extremity [Recovering/Resolving]
  - Blood cholesterol increased [Recovering/Resolving]
  - Pain in extremity [Recovering/Resolving]
  - Body height decreased [Unknown]
  - Rheumatoid arthritis [Recovering/Resolving]
  - Weight abnormal [Recovering/Resolving]

NARRATIVE: CASE EVENT DATE: 2019
